FAERS Safety Report 6613485-7 (Version None)
Quarter: 2010Q1

REPORT INFORMATION
  Report Type: 
  Country: None (occurrence: None)
  Receive Date: 20100304
  Receipt Date: 20100223
  Transmission Date: 20100710
  Serious: Yes (Other)
  Sender: FDA-Public Use
  Company Number: CA-JNJFOC-20100209855

PATIENT
  Sex: Male

DRUGS (1)
  1. TYLENOL W/ CODEINE NO. 3 [Suspect]
     Indication: ARTHRALGIA
     Route: 065

REACTIONS (2)
  - AGGRESSION [None]
  - MOOD SWINGS [None]
